FAERS Safety Report 14759770 (Version 1)
Quarter: 2018Q2

REPORT INFORMATION
  Report Type: Spontaneous
  Country: US (occurrence: US)
  Receive Date: 20180413
  Receipt Date: 20180413
  Transmission Date: 20180711
  Serious: No
  Sender: FDA-Public Use
  Company Number: US-BEH-2018089723

PATIENT
  Sex: Female
  Weight: 70.75 kg

DRUGS (35)
  1. HIZENTRA [Suspect]
     Active Substance: HUMAN IMMUNOGLOBULIN G
     Indication: IMMUNODEFICIENCY COMMON VARIABLE
     Dosage: 13 G, QW
     Route: 058
     Dates: start: 20161024
  2. LYRICA [Concomitant]
     Active Substance: PREGABALIN
  3. OMEGA-3                            /01866101/ [Concomitant]
     Active Substance: OMEGA-3 FATTY ACIDS
  4. CALCIUM 600 PLUS VITAMIN D [Concomitant]
     Active Substance: CALCIUM CARBONATE\VITAMIN D
  5. EFINACONAZOLE [Concomitant]
     Active Substance: EFINACONAZOLE
  6. ELIQUIS [Concomitant]
     Active Substance: APIXABAN
  7. DIPHENHYDRAMINE. [Concomitant]
     Active Substance: DIPHENHYDRAMINE
  8. LMX                                /00033401/ [Concomitant]
  9. PULMICORT TURBUHALER [Concomitant]
     Active Substance: BUDESONIDE
  10. SEROQUEL [Concomitant]
     Active Substance: QUETIAPINE FUMARATE
  11. DEPLIN [Concomitant]
     Active Substance: LEVOMEFOLATE CALCIUM
  12. OXYCODONE [Concomitant]
     Active Substance: OXYCODONE
  13. CRANBERRY                          /01512301/ [Concomitant]
     Active Substance: CRANBERRY
  14. LORAZEPAM. [Concomitant]
     Active Substance: LORAZEPAM
  15. GAVISCON                           /00237601/ [Concomitant]
     Active Substance: ALUMINUM HYDROXIDE\MAGNESIUM CARBONATE
  16. PROBIOTIC                          /06395501/ [Concomitant]
     Active Substance: BIFIDOBACTERIUM ANIMALIS LACTIS
  17. ACIPHEX [Concomitant]
     Active Substance: RABEPRAZOLE SODIUM
  18. XOPENEX [Concomitant]
     Active Substance: LEVALBUTEROL HYDROCHLORIDE
  19. ACETAMINOPHEN. [Concomitant]
     Active Substance: ACETAMINOPHEN
  20. OXYGEN. [Concomitant]
     Active Substance: OXYGEN
  21. ZANTAC [Concomitant]
     Active Substance: RANITIDINE HYDROCHLORIDE
  22. LEVALBUTEROL. [Concomitant]
     Active Substance: LEVALBUTEROL
  23. SYMBICORT [Concomitant]
     Active Substance: BUDESONIDE\FORMOTEROL FUMARATE DIHYDRATE
  24. AZASITE [Concomitant]
     Active Substance: AZITHROMYCIN MONOHYDRATE
  25. AZELASTINE. [Concomitant]
     Active Substance: AZELASTINE HYDROCHLORIDE
  26. VITAMINS WITH MINERALS [Concomitant]
     Active Substance: MINERALS\VITAMINS
  27. GEMFIBROZIL. [Concomitant]
     Active Substance: GEMFIBROZIL
  28. SPIRIVA [Concomitant]
     Active Substance: TIOTROPIUM BROMIDE MONOHYDRATE
  29. GUANFACINE. [Concomitant]
     Active Substance: GUANFACINE
  30. VITAMIN D3 [Concomitant]
     Active Substance: CHOLECALCIFEROL
  31. EPINEPHRINE. [Concomitant]
     Active Substance: EPINEPHRINE
  32. LAMOTRIGINE. [Concomitant]
     Active Substance: LAMOTRIGINE
  33. PREDNISONE. [Concomitant]
     Active Substance: PREDNISONE
  34. MIRALAX [Concomitant]
     Active Substance: POLYETHYLENE GLYCOL 3350
  35. PROLIA [Concomitant]
     Active Substance: DENOSUMAB

REACTIONS (3)
  - Nodule [Unknown]
  - Rash [Unknown]
  - Vaginal fistula [Unknown]
